FAERS Safety Report 18574367 (Version 1)
Quarter: 2020Q4

REPORT INFORMATION
  Report Type: Spontaneous
  Country: US (occurrence: US)
  Receive Date: 20201203
  Receipt Date: 20201203
  Transmission Date: 20210114
  Serious: No
  Sender: FDA-Public Use
  Company Number: US-AMNEAL PHARMACEUTICALS-2019-AMRX-03282

PATIENT
  Age: 51 Year
  Sex: Male
  Weight: 65 kg

DRUGS (1)
  1. RANITIDINE. [Suspect]
     Active Substance: RANITIDINE
     Indication: GASTROOESOPHAGEAL REFLUX DISEASE
     Dosage: 150 MILLIGRAM, 2 /DAY
     Route: 048
     Dates: start: 2001, end: 200911

REACTIONS (2)
  - Chest pain [Unknown]
  - Vomiting [Unknown]

NARRATIVE: CASE EVENT DATE: 2010
